FAERS Safety Report 4278158-7 (Version None)
Quarter: 2004Q1

REPORT INFORMATION
  Report Type: 
  Country: None (occurrence: None)
  Receive Date: 20040120
  Receipt Date: 20040105
  Transmission Date: 20041129
  Serious: Yes (Hospitalization)
  Sender: FDA-Public Use
  Company Number: 189866

PATIENT
  Age: 18 Year
  Sex: Male
  Weight: 88.4514 kg

DRUGS (8)
  1. AVONEX [Suspect]
     Indication: MULTIPLE SCLEROSIS
     Dosage: UNK
     Route: 065
     Dates: start: 20030801, end: 20030101
  2. AVONEX [Suspect]
     Indication: MULTIPLE SCLEROSIS
     Dosage: 30 MCG QW; IM
     Route: 030
     Dates: start: 20030101
  3. ZOLOFT [Concomitant]
  4. BACLOFEN [Concomitant]
  5. DITROPAN XL [Concomitant]
  6. NAPROSYN [Concomitant]
  7. PREDNISONE [Concomitant]
  8. MOTRIN [Concomitant]

REACTIONS (9)
  - BLADDER DISORDER [None]
  - CONDITION AGGRAVATED [None]
  - DEHYDRATION [None]
  - DEPRESSION [None]
  - GASTROINTESTINAL DISORDER [None]
  - LACERATION [None]
  - MULTIPLE SCLEROSIS [None]
  - NASOPHARYNGITIS [None]
  - VOMITING [None]
